FAERS Safety Report 7939988-0 (Version None)
Quarter: 2011Q4

REPORT INFORMATION
  Report Type: 
  Country: None (occurrence: None)
  Receive Date: 20111125
  Receipt Date: 20111121
  Transmission Date: 20120403
  Serious: Yes (Death, Other)
  Sender: FDA-Public Use
  Company Number: PHHY2010JP34765

PATIENT
  Sex: Male
  Weight: 60 kg

DRUGS (14)
  1. CALCIUM LACTATE [Concomitant]
     Indication: PROPHYLAXIS
     Route: 048
     Dates: start: 20070627
  2. MUCOSTA [Concomitant]
     Indication: PROPHYLAXIS
     Dosage: 300 MG, UNK
     Route: 048
     Dates: start: 20070710
  3. RED CELLS MAP [Concomitant]
     Dosage: 2 UNITS EVERY 2 WEEKS
     Dates: start: 20080419
  4. EXJADE [Suspect]
     Indication: IRON OVERLOAD
     Dosage: 1000 MG, DAILY
     Route: 048
     Dates: start: 20090507, end: 20090511
  5. PREDNISOLONE [Suspect]
     Indication: APLASIA PURE RED CELL
     Route: 048
     Dates: start: 20070627, end: 20090828
  6. PREDNISOLONE [Suspect]
     Dosage: UNK UKN, UNK
     Route: 048
     Dates: start: 20090829
  7. CIPROFLOXACIN HCL [Concomitant]
     Indication: PROPHYLAXIS
     Dosage: 600 MG, UNK
     Route: 048
     Dates: start: 20090328, end: 20090331
  8. EXJADE [Suspect]
     Dosage: 500 MG, DAILY
     Route: 048
     Dates: start: 20090606, end: 20090607
  9. DIOVAN [Concomitant]
     Dosage: 160 MG, UNK
     Route: 048
     Dates: start: 20081201
  10. NORVASC [Concomitant]
     Dosage: 5 MG, UNK
     Route: 048
     Dates: start: 20081201
  11. EXJADE [Suspect]
     Dosage: 500 MG, DAILY
     Route: 048
     Dates: start: 20090619, end: 20090718
  12. NEORAL [Suspect]
     Indication: APLASIA PURE RED CELL
     Dosage: 200 MG, DAILY
     Route: 048
     Dates: start: 20030222
  13. RED CELLS MAP [Concomitant]
     Dosage: 2 U, EVERY 2 WEEKS
     Dates: start: 20021228, end: 20030301
  14. EXJADE [Suspect]
     Indication: APLASIA PURE RED CELL
     Dosage: 1000 MG, DAILY
     Route: 048
     Dates: start: 20090325, end: 20090330

REACTIONS (12)
  - PHARYNGITIS [None]
  - DIARRHOEA [None]
  - NAUSEA [None]
  - DISSEMINATED TUBERCULOSIS [None]
  - ALANINE AMINOTRANSFERASE INCREASED [None]
  - DECREASED APPETITE [None]
  - SERUM FERRITIN INCREASED [None]
  - DUODENAL ULCER [None]
  - GASTRITIS [None]
  - C-REACTIVE PROTEIN INCREASED [None]
  - VIRAL INFECTION [None]
  - ASPARTATE AMINOTRANSFERASE INCREASED [None]
